FAERS Safety Report 24280812 (Version 1)
Quarter: 2024Q3

REPORT INFORMATION
  Report Type: Spontaneous
  Country: GB (occurrence: GB)
  Receive Date: 20240904
  Receipt Date: 20240904
  Transmission Date: 20241016
  Serious: Yes (Other)
  Sender: MYLAN
  Company Number: None

PATIENT
  Age: 50 Year
  Sex: Female

DRUGS (4)
  1. ISOTRETINOIN [Suspect]
     Active Substance: ISOTRETINOIN
     Indication: Lichen planopilaris
     Dosage: 20 MILLIGRAM, QD
     Route: 065
  2. HYDROXYCHLOROQUINE [Suspect]
     Active Substance: HYDROXYCHLOROQUINE
     Indication: Lichen planopilaris
     Dosage: 200 MILLIGRAM, QD (DAILY)
     Route: 065
  3. TACROLIMUS [Suspect]
     Active Substance: TACROLIMUS
     Indication: Lichen planopilaris
     Dosage: 1 DOSAGE FORM, BID
     Route: 061
  4. MOMETASONE [Suspect]
     Active Substance: MOMETASONE
     Indication: Lichen planopilaris
     Dosage: 0.1 PERCENT (TWO TIMES WEEKLY)
     Route: 065

REACTIONS (2)
  - Drug ineffective [Unknown]
  - Disease progression [Unknown]
